FAERS Safety Report 14956771 (Version 1)
Quarter: 2018Q2

REPORT INFORMATION
  Report Type: Spontaneous
  Country: US (occurrence: US)
  Receive Date: 20180531
  Receipt Date: 20180531
  Transmission Date: 20180711
  Serious: No
  Sender: FDA-Public Use
  Company Number: US-NOVEN PHARMACEUTICALS, INC.-US2017001087

PATIENT

DRUGS (4)
  1. DAYTRANA [Suspect]
     Active Substance: METHYLPHENIDATE
     Indication: ATTENTION DEFICIT/HYPERACTIVITY DISORDER
     Dosage: LOWER DOSAGE, UNK
     Route: 062
  2. INTUNIV [Concomitant]
     Active Substance: GUANFACINE HYDROCHLORIDE
     Dosage: 1 MG, UNK
  3. DAYTRANA [Suspect]
     Active Substance: METHYLPHENIDATE
     Indication: AUTISM SPECTRUM DISORDER
     Dosage: 15 MG, UNKNOWN
     Route: 062
  4. DAYTRANA [Suspect]
     Active Substance: METHYLPHENIDATE
     Dosage: 15 MG, UNKNOWN
     Route: 062
     Dates: start: 2017, end: 2017

REACTIONS (8)
  - Drug administration error [Recovered/Resolved]
  - Off label use [Unknown]
  - Drug ineffective [Recovered/Resolved]
  - Anger [Recovered/Resolved]
  - Frustration tolerance decreased [Recovered/Resolved]
  - Aggression [Recovered/Resolved]
  - Product storage error [Recovered/Resolved]
  - Therapy cessation [Not Recovered/Not Resolved]

NARRATIVE: CASE EVENT DATE: 2017
